FAERS Safety Report 19457457 (Version 3)
Quarter: 2024Q2

REPORT INFORMATION
  Report Type: Spontaneous
  Country: FR (occurrence: FR)
  Receive Date: 20210624
  Receipt Date: 20240614
  Transmission Date: 20240715
  Serious: Yes (Other)
  Sender: FDA-Public Use
  Company Number: None

PATIENT
  Age: 56 Year
  Sex: Male
  Weight: 90 kg

DRUGS (2)
  1. OPDIVO [Suspect]
     Active Substance: NIVOLUMAB
     Indication: Malignant melanoma
     Dosage: 1 DOSAGE FORM, Q3WK
     Route: 042
     Dates: start: 20210127, end: 20230515
  2. YERVOY [Suspect]
     Active Substance: IPILIMUMAB
     Indication: Malignant melanoma
     Dosage: 1 DOSAGE FORM, Q3WK
     Route: 042
     Dates: start: 20210127, end: 20210413

REACTIONS (1)
  - Thyroid disorder [Recovered/Resolved with Sequelae]

NARRATIVE: CASE EVENT DATE: 20210215
